FAERS Safety Report 19881590 (Version 1)
Quarter: 2021Q3

REPORT INFORMATION
  Report Type: Report from Study
  Country: FR (occurrence: FR)
  Receive Date: 20210924
  Receipt Date: 20210924
  Transmission Date: 20211014
  Serious: Yes (Death, Hospitalization, Other)
  Sender: FDA-Public Use
  Company Number: FR-B.I. PHARMACEUTICALS,INC./RIDGEFIELD-2021-BI-114685

PATIENT
  Age: 39 Year
  Sex: Female

DRUGS (5)
  1. ESCITALOPRAM [Concomitant]
     Active Substance: ESCITALOPRAM OXALATE
     Indication: DEPRESSION
     Route: 048
     Dates: start: 2019
  2. NINTEDANIB [Suspect]
     Active Substance: NINTEDANIB
     Indication: RENAL CELL CARCINOMA
     Route: 048
     Dates: start: 20210521, end: 20210708
  3. PRAZEPAM [Concomitant]
     Active Substance: PRAZEPAM
     Indication: DEPRESSION
     Route: 048
     Dates: start: 2019
  4. OESTROGEL [Concomitant]
     Active Substance: ESTRADIOL
     Indication: PRODUCT USED FOR UNKNOWN INDICATION
     Dosage: 3/D
     Route: 061
     Dates: start: 2018
  5. PEMBROLIZUMAB. [Suspect]
     Active Substance: PEMBROLIZUMAB
     Indication: RENAL CELL CARCINOMA
     Route: 042
     Dates: start: 20210528, end: 20210618

REACTIONS (2)
  - Pancreatitis [Fatal]
  - Disease progression [Fatal]

NARRATIVE: CASE EVENT DATE: 20210708
